FAERS Safety Report 9729502 (Version 1)
Quarter: 2013Q4

REPORT INFORMATION
  Report Type: Spontaneous
  Country: US (occurrence: US)
  Receive Date: 20131204
  Receipt Date: 20131204
  Transmission Date: 20140711
  Serious: No
  Sender: FDA-Public Use
  Company Number: US-GILEAD-2009-0022029

PATIENT
  Sex: Male
  Weight: 100.24 kg

DRUGS (18)
  1. LETAIRIS [Suspect]
     Indication: PULMONARY ARTERIAL HYPERTENSION
     Route: 048
     Dates: start: 20081126
  2. VENTAVIS [Concomitant]
     Indication: PULMONARY ARTERIAL HYPERTENSION
     Dates: start: 20090417
  3. REVATIO [Concomitant]
  4. LASIX [Concomitant]
  5. TOPROL XL [Concomitant]
  6. OXYGEN [Concomitant]
  7. VENTOLIN [Concomitant]
  8. ADVAIR 250-50 DISKUS [Concomitant]
  9. PLAVIX [Concomitant]
  10. PRAVASTATIN SODIUM [Concomitant]
  11. LANTUS [Concomitant]
  12. NOVOLOG [Concomitant]
  13. METFORMIN HCL [Concomitant]
  14. NEURONTIN [Concomitant]
  15. MIRTAZAPINE [Concomitant]
  16. CLONAZEPAM [Concomitant]
  17. BENTYL [Concomitant]
  18. ACIPHEX [Concomitant]

REACTIONS (1)
  - Oedema peripheral [Unknown]
